FAERS Safety Report 23312783 (Version 1)
Quarter: 2023Q4

REPORT INFORMATION
  Report Type: Spontaneous
  Country: US (occurrence: US)
  Receive Date: 20231219
  Receipt Date: 20231219
  Transmission Date: 20240109
  Serious: Yes (Other)
  Sender: FDA-Public Use
  Company Number: US-862174955-ML2023-07209

PATIENT
  Age: 74 Year
  Sex: Male

DRUGS (1)
  1. KETOROLAC [Suspect]
     Active Substance: KETOROLAC TROMETHAMINE
     Indication: Back pain

REACTIONS (7)
  - Leukocyturia [Unknown]
  - Fibrosis [Unknown]
  - Atrophy [Unknown]
  - Eczema [Unknown]
  - Renal tubular injury [Unknown]
  - Tachycardia [Unknown]
  - Hypotension [Unknown]
